FAERS Safety Report 13455310 (Version 1)
Quarter: 2017Q2

REPORT INFORMATION
  Report Type: Spontaneous
  Country: US (occurrence: US)
  Receive Date: 20170418
  Receipt Date: 20170418
  Transmission Date: 20170830
  Serious: Yes (Hospitalization, Disabling)
  Sender: FDA-Public Use
  Company Number: None

PATIENT
  Age: 24 Year
  Sex: Female
  Weight: 58.11 kg

DRUGS (5)
  1. XANAX [Concomitant]
     Active Substance: ALPRAZOLAM
  2. ALBUTEROL. [Concomitant]
     Active Substance: ALBUTEROL
  3. ZOLOFT [Concomitant]
     Active Substance: SERTRALINE HYDROCHLORIDE
  4. NEXPLANON [Suspect]
     Active Substance: ETONOGESTREL
     Dates: start: 20170323, end: 20170414
  5. PROVENTIL [Concomitant]
     Active Substance: ALBUTEROL

REACTIONS (12)
  - Anxiety [None]
  - Tremor [None]
  - Palpitations [None]
  - Insomnia [None]
  - Crying [None]
  - Emotional disorder [None]
  - Restlessness [None]
  - Depression [None]
  - Nervousness [None]
  - Decreased appetite [None]
  - Panic attack [None]
  - Dyspnoea [None]

NARRATIVE: CASE EVENT DATE: 20170408
